FAERS Safety Report 9199924 (Version 1)
Quarter: 2013Q1

REPORT INFORMATION
  Report Type: Spontaneous
  Country: US (occurrence: US)
  Receive Date: 20130329
  Receipt Date: 20130329
  Transmission Date: 20140127
  Serious: Yes (Other)
  Sender: FDA-Public Use
  Company Number: US-SANOFI-AVENTIS-2013SA032042

PATIENT
  Age: 54 Year
  Sex: Female

DRUGS (6)
  1. OXALIPLATIN [Suspect]
     Indication: COLON CANCER
     Dates: start: 201006
  2. OXALIPLATIN [Suspect]
     Indication: COLON CANCER
     Dates: start: 201011, end: 201103
  3. 5-FU [Suspect]
     Indication: COLON CANCER
     Dates: start: 201006
  4. 5-FU [Suspect]
     Indication: COLON CANCER
     Dates: start: 201011, end: 201103
  5. LEUCOVORIN [Suspect]
     Indication: COLON CANCER
     Dates: start: 201006
  6. LEUCOVORIN [Suspect]
     Indication: COLON CANCER
     Dates: start: 201011, end: 201103

REACTIONS (5)
  - Hepatectomy [Unknown]
  - Intestinal resection [Unknown]
  - Cholecystectomy [Unknown]
  - Appendicectomy [Unknown]
  - Metastases to lung [Unknown]
